FAERS Safety Report 9131985 (Version 1)
Quarter: 2013Q1

REPORT INFORMATION
  Report Type: Spontaneous
  Country: IT (occurrence: IT)
  Receive Date: 20130301
  Receipt Date: 20130301
  Transmission Date: 20140127
  Serious: Yes (Hospitalization, Other)
  Sender: FDA-Public Use
  Company Number: IT-ELI_LILLY_AND_COMPANY-IT201302006653

PATIENT
  Age: 49 Year
  Sex: Male

DRUGS (5)
  1. ZYPREXA [Suspect]
     Indication: DEPRESSION
     Dosage: 1 DF, UNKNOWN
     Route: 048
     Dates: end: 20130206
  2. DEPAKINE CHRONO [Concomitant]
     Indication: DEPRESSION
     Dosage: 500 MG, UNKNOWN
     Route: 048
     Dates: end: 20130206
  3. DEPAKINE CHRONO [Concomitant]
     Dosage: 1 DF, UNKNOWN
  4. LORAZEPAM [Concomitant]
     Indication: DEPRESSION
     Dosage: 2.5 MG, QD
     Route: 048
     Dates: end: 20130206
  5. LORAZEPAM [Concomitant]
     Dosage: 1 DF, UNKNOWN

REACTIONS (6)
  - Electrocardiogram repolarisation abnormality [Recovering/Resolving]
  - Intentional self-injury [Recovering/Resolving]
  - Blood creatine phosphokinase increased [Recovering/Resolving]
  - Sopor [Recovering/Resolving]
  - Toxicity to various agents [Recovering/Resolving]
  - Myoglobin blood increased [Recovered/Resolved]
